FAERS Safety Report 6131399-6 (Version None)
Quarter: 2009Q1

REPORT INFORMATION
  Report Type: 
  Country: None (occurrence: None)
  Receive Date: 20090325
  Receipt Date: 20080925
  Transmission Date: 20090719
  Serious: No
  Sender: FDA-Public Use
  Company Number: US-BRISTOL-MYERS SQUIBB COMPANY-14190698

PATIENT
  Age: 74 Year
  Sex: Male
  Weight: 79 kg

DRUGS (13)
  1. ERBITUX [Suspect]
     Indication: HEAD AND NECK CANCER
     Route: 042
     Dates: start: 20080507
  2. DILANTIN [Suspect]
  3. OXYCODONE HCL [Concomitant]
  4. LACTULOSE [Concomitant]
  5. MIRALAX [Concomitant]
  6. SENNA [Concomitant]
  7. DULCOLAX [Concomitant]
  8. ASPIRIN [Concomitant]
  9. TEMAZEPAM [Concomitant]
  10. BENICAR [Concomitant]
  11. CLONIDINE [Concomitant]
  12. BENADRYL [Concomitant]
     Indication: PREMEDICATION
  13. ONDANSETRON [Concomitant]
     Indication: PREMEDICATION

REACTIONS (2)
  - DRUG LEVEL INCREASED [None]
  - HEADACHE [None]
